FAERS Safety Report 25767420 (Version 1)
Quarter: 2025Q3

REPORT INFORMATION
  Report Type: Report from Study
  Country: BR (occurrence: BR)
  Receive Date: 20250905
  Receipt Date: 20250905
  Transmission Date: 20251021
  Serious: Yes (Other)
  Sender: ABBVIE
  Company Number: BR-JNJFOC-20250901643

PATIENT
  Age: 84 Year
  Sex: Female
  Weight: 90 kg

DRUGS (1)
  1. IMBRUVICA [Suspect]
     Active Substance: IBRUTINIB
     Indication: Chronic lymphocytic leukaemia
     Dosage: ONE 420 MG TABLET AT NIGHT
     Route: 048

REACTIONS (1)
  - Renal injury [Unknown]
